FAERS Safety Report 15848385 (Version 1)
Quarter: 2019Q1

REPORT INFORMATION
  Report Type: Spontaneous
  Country: US (occurrence: US)
  Receive Date: 20190121
  Receipt Date: 20190121
  Transmission Date: 20190417
  Serious: No
  Sender: FDA-Public Use
  Company Number: US-PFIZER INC-2019026192

PATIENT
  Age: 71 Year
  Sex: Female
  Weight: 53.61 kg

DRUGS (1)
  1. IBRANCE [Suspect]
     Active Substance: PALBOCICLIB
     Indication: BREAST CANCER
     Dosage: 125 MG, CYCLIC (1CAP/DAILY 1-21/DAYS)
     Route: 048

REACTIONS (3)
  - Alopecia [Unknown]
  - Haemorrhoids [Unknown]
  - Abdominal discomfort [Unknown]
